FAERS Safety Report 6262332-4 (Version None)
Quarter: 2009Q3

REPORT INFORMATION
  Report Type: 
  Country: None (occurrence: None)
  Receive Date: 20090709
  Receipt Date: 20090630
  Transmission Date: 20100115
  Serious: Yes (Other)
  Sender: FDA-Public Use
  Company Number: PHEH2009US07019

PATIENT
  Sex: Male

DRUGS (1)
  1. SANDOSTATIN [Suspect]
     Indication: CARCINOID SYNDROME

REACTIONS (5)
  - BLISTER [None]
  - HALLUCINATION [None]
  - HERPES ZOSTER [None]
  - INJECTION SITE INFLAMMATION [None]
  - MOTOR DYSFUNCTION [None]
